FAERS Safety Report 4650377-7 (Version None)
Quarter: 2005Q2

REPORT INFORMATION
  Report Type: 
  Country: None (occurrence: None)
  Receive Date: 20050429
  Receipt Date: 20050418
  Transmission Date: 20051028
  Serious: No
  Sender: FDA-Public Use
  Company Number: 2004PK02024

PATIENT
  Age: 52 Year
  Sex: Male
  Weight: 80 kg

DRUGS (4)
  1. SEROQUEL [Suspect]
     Indication: SCHIZOPHRENIA, PARANOID TYPE
     Dosage: 300 MG DAIILY PO
     Route: 048
     Dates: start: 20040429, end: 20040614
  2. SEROQUEL [Suspect]
     Indication: SCHIZOPHRENIA, PARANOID TYPE
     Dosage: 900 MG DAILY PO
     Route: 048
     Dates: start: 20040615, end: 20040702
  3. HALDOL-JANSSEN DECANOAT [Concomitant]
  4. ACERBON ^ZENECA^ [Concomitant]

REACTIONS (2)
  - AGRANULOCYTOSIS [None]
  - COLITIS [None]
